FAERS Safety Report 16741620 (Version 1)
Quarter: 2019Q3

REPORT INFORMATION
  Report Type: Spontaneous
  Country: IT (occurrence: IT)
  Receive Date: 20190826
  Receipt Date: 20190826
  Transmission Date: 20191005
  Serious: Yes (Other)
  Sender: FDA-Public Use
  Company Number: IT-ALLERGAN-1934783US

PATIENT
  Sex: Female

DRUGS (4)
  1. EUTIROX [Suspect]
     Active Substance: LEVOTHYROXINE SODIUM
     Indication: INTENTIONAL SELF-INJURY
     Dosage: 25 TABLETS IN ONE TIME
     Route: 048
  2. TARDYFER [Suspect]
     Active Substance: FERROUS SULFATE
     Indication: INTENTIONAL SELF-INJURY
     Dosage: 800 MG, 10 TABLETS IN ONE TIME
     Route: 048
     Dates: start: 20190808, end: 20190808
  3. RIVOTRIL [Suspect]
     Active Substance: CLONAZEPAM
     Indication: INTENTIONAL SELF-INJURY
     Dosage: 20 ML AT ONE TIME
     Route: 048
     Dates: start: 20190808, end: 20190808
  4. CITALOPRAM HYDROBROMIDE - BP [Suspect]
     Active Substance: CITALOPRAM HYDROBROMIDE
     Indication: INTENTIONAL SELF-INJURY
     Dosage: OVERDOSE: 20 ML, IN ONE TIME
     Route: 048
     Dates: start: 20190808, end: 20190808

REACTIONS (2)
  - Intentional overdose [Unknown]
  - Sopor [Unknown]

NARRATIVE: CASE EVENT DATE: 20190808
